FAERS Safety Report 6563033-5 (Version None)
Quarter: 2010Q1

REPORT INFORMATION
  Report Type: 
  Country: None (occurrence: None)
  Receive Date: 20100130
  Receipt Date: 20091130
  Transmission Date: 20100710
  Serious: No
  Sender: FDA-Public Use
  Company Number: US-ABBOTT-09P-163-0611673-00

PATIENT
  Sex: Female
  Weight: 63.56 kg

DRUGS (2)
  1. HUMIRA [Suspect]
     Indication: CROHN'S DISEASE
     Route: 058
     Dates: start: 20090301
  2. INFLUENZA VACCINE [Suspect]
     Indication: INFLUENZA IMMUNISATION
     Route: 058
     Dates: start: 20091124, end: 20091124

REACTIONS (2)
  - NAUSEA [None]
  - VOMITING [None]
